FAERS Safety Report 8941764 (Version 1)
Quarter: 2012Q4

REPORT INFORMATION
  Report Type: 
  Country: US (occurrence: US)
  Receive Date: 20121203
  Receipt Date: 20121203
  Transmission Date: 20130627
  Serious: Yes (Hospitalization, Congenital Anomaly, Other)
  Sender: FDA-Public Use
  Company Number: US-PFIZER INC-2012298889

PATIENT
  Sex: Female

DRUGS (10)
  1. ZOLOFT [Suspect]
     Dosage: 100 mg, UNK
     Route: 064
     Dates: start: 20050802
  2. ZOLOFT [Suspect]
     Dosage: 150 mg
     Route: 064
     Dates: start: 20060206
  3. NITROFURANTOIN MACRO [Concomitant]
     Dosage: 100 mg
     Route: 064
     Dates: start: 20050722
  4. LORATADINE [Concomitant]
     Dosage: 10 mg
     Route: 064
     Dates: start: 20050805
  5. METRONIDAZOLE [Concomitant]
     Dosage: 500 mg
     Route: 064
     Dates: start: 20050916
  6. CLINDAMAX [Concomitant]
     Dosage: UNK
     Route: 064
     Dates: start: 20050922
  7. ZYPREXA [Concomitant]
     Dosage: 5 mg
     Route: 064
     Dates: start: 20051227
  8. NIFEDIPINE ER [Concomitant]
     Dosage: 30 mg
     Route: 064
     Dates: start: 20060131
  9. NIFEDIPINE [Concomitant]
     Dosage: 10 mg
     Route: 064
     Dates: start: 20060202
  10. CEPHALEXIN [Concomitant]
     Dosage: 500 mg
     Route: 064
     Dates: start: 20060206

REACTIONS (6)
  - Maternal exposure timing unspecified [Unknown]
  - Talipes [Unknown]
  - Neonatal respiratory distress syndrome [Unknown]
  - Transient tachypnoea of the newborn [Unknown]
  - Bicuspid aortic valve [Unknown]
  - Premature baby [Unknown]
